FAERS Safety Report 16929868 (Version 2)
Quarter: 2019Q4

REPORT INFORMATION
  Report Type: Spontaneous
  Country: CN (occurrence: CN)
  Receive Date: 20191017
  Receipt Date: 20191024
  Transmission Date: 20200122
  Serious: Yes (Other)
  Sender: FDA-Public Use
  Company Number: CN-ASTRAZENECA-2019SF46098

PATIENT
  Age: 82 Year
  Sex: Male

DRUGS (4)
  1. IRESSA [Suspect]
     Active Substance: GEFITINIB
     Indication: LUNG NEOPLASM MALIGNANT
     Route: 048
     Dates: start: 20190927
  2. IRESSA [Suspect]
     Active Substance: GEFITINIB
     Indication: LUNG NEOPLASM MALIGNANT
     Dosage: DOMESTIC GEFITINIB FOR ONE AND HALF MONTHS
     Route: 065
  3. IRESSA [Suspect]
     Active Substance: GEFITINIB
     Indication: METASTASES TO CENTRAL NERVOUS SYSTEM
     Dosage: DOMESTIC GEFITINIB FOR ONE AND HALF MONTHS
     Route: 065
  4. IRESSA [Suspect]
     Active Substance: GEFITINIB
     Indication: METASTASES TO CENTRAL NERVOUS SYSTEM
     Route: 048
     Dates: start: 20190927

REACTIONS (5)
  - Diarrhoea [Recovered/Resolved]
  - Intracranial tumour haemorrhage [Not Recovered/Not Resolved]
  - Tumour necrosis [Unknown]
  - Tumour rupture [Unknown]
  - Brain neoplasm [Unknown]
